FAERS Safety Report 18112816 (Version 1)
Quarter: 2020Q3

REPORT INFORMATION
  Report Type: Spontaneous
  Country: US (occurrence: US)
  Receive Date: 20200804
  Receipt Date: 20200804
  Transmission Date: 20201103
  Serious: Yes (Other)
  Sender: FDA-Public Use
  Company Number: None

PATIENT
  Age: 70 Year
  Sex: Female
  Weight: 80.55 kg

DRUGS (6)
  1. XANAX [Concomitant]
     Active Substance: ALPRAZOLAM
  2. MURO 128 [Suspect]
     Active Substance: SODIUM CHLORIDE
     Indication: EYE INFLAMMATION
     Dosage: ?          OTHER STRENGTH:1/4 INCH;QUANTITY:1 1/4;?
     Route: 047
     Dates: start: 20200802, end: 20200804
  3. ALEVE [Concomitant]
     Active Substance: NAPROXEN SODIUM
  4. TUMS [Concomitant]
     Active Substance: CALCIUM CARBONATE
  5. VITAMIN D [Concomitant]
     Active Substance: VITAMIN D NOS
  6. ATARAX [Concomitant]
     Active Substance: HYDROXYZINE HYDROCHLORIDE

REACTIONS (4)
  - Burning sensation [None]
  - Swelling face [None]
  - Facial pain [None]
  - Erythema [None]

NARRATIVE: CASE EVENT DATE: 20200804
